FAERS Safety Report 9805594 (Version 1)
Quarter: 2014Q1

REPORT INFORMATION
  Report Type: Spontaneous
  Country: US (occurrence: US)
  Receive Date: 20140109
  Receipt Date: 20140109
  Transmission Date: 20141002
  Serious: Yes (Death, Other)
  Sender: FDA-Public Use
  Company Number: US-UCBSA-108209

PATIENT
  Age: 41 Year
  Sex: Female

DRUGS (5)
  1. OMEPRAZOLE [Suspect]
     Route: 048
  2. BUPROPION [Suspect]
     Route: 048
  3. RISPERIDONE [Suspect]
     Route: 048
  4. LAMOTRIGINE [Suspect]
     Route: 048
  5. CITALOPRAM [Suspect]
     Route: 048

REACTIONS (1)
  - Completed suicide [Fatal]
